FAERS Safety Report 5947667-4 (Version None)
Quarter: 2008Q4

REPORT INFORMATION
  Report Type: 
  Country: None (occurrence: None)
  Receive Date: 20081110
  Receipt Date: 20071029
  Transmission Date: 20090506
  Serious: Yes (Death, Hospitalization)
  Sender: FDA-Public Use
  Company Number: 000614

PATIENT
  Age: 33 Year
  Sex: Male

DRUGS (6)
  1. BUSULFEX [Suspect]
     Indication: STEM CELL TRANSPLANT
     Dosage: 6 ML, QID, INTRAVENOUS
     Route: 042
     Dates: start: 20070314, end: 20070315
  2. VALPROATE SODIUM [Concomitant]
  3. FLUDARABINE PHOSPHATE [Concomitant]
  4. LENOGRASTIM (LENOGRASTIM) [Concomitant]
  5. METHOTREXATE [Concomitant]
  6. TACROLIMUS [Concomitant]

REACTIONS (10)
  - ANOREXIA [None]
  - BONE MARROW TRANSPLANT REJECTION [None]
  - DIARRHOEA [None]
  - MALAISE [None]
  - NAUSEA [None]
  - PNEUMONIA STAPHYLOCOCCAL [None]
  - STAPHYLOCOCCAL INFECTION [None]
  - STENOTROPHOMONAS SEPSIS [None]
  - STOMATITIS [None]
  - TRANSPLANT REJECTION [None]
